FAERS Safety Report 22147199 (Version 2)
Quarter: 2023Q4

REPORT INFORMATION
  Report Type: Report from Study
  Country: US (occurrence: US)
  Receive Date: 20230328
  Receipt Date: 20231113
  Transmission Date: 20240109
  Serious: Yes (Other)
  Sender: FDA-Public Use
  Company Number: US-TAKEDA-2023TUS031773

PATIENT
  Age: 66 Year
  Sex: Female

DRUGS (20)
  1. TEDUGLUTIDE [Suspect]
     Active Substance: TEDUGLUTIDE
     Indication: Short-bowel syndrome
     Dosage: 2.9 MILLIGRAM, QD
     Route: 042
     Dates: start: 20140609, end: 20141023
  2. TEDUGLUTIDE [Suspect]
     Active Substance: TEDUGLUTIDE
     Indication: Short-bowel syndrome
     Dosage: 2.9 MILLIGRAM, QD
     Route: 042
     Dates: start: 20140609, end: 20141023
  3. TEDUGLUTIDE [Suspect]
     Active Substance: TEDUGLUTIDE
     Indication: Short-bowel syndrome
     Dosage: 2.9 MILLIGRAM, QD
     Route: 042
     Dates: start: 20140609, end: 20141023
  4. TEDUGLUTIDE [Suspect]
     Active Substance: TEDUGLUTIDE
     Indication: Short-bowel syndrome
     Dosage: 2.9 MILLIGRAM, QD
     Route: 042
     Dates: start: 20140609, end: 20141023
  5. TEDUGLUTIDE [Suspect]
     Active Substance: TEDUGLUTIDE
     Dosage: 2.7 MILLIGRAM, QD
     Route: 042
     Dates: start: 20190526, end: 20200320
  6. TEDUGLUTIDE [Suspect]
     Active Substance: TEDUGLUTIDE
     Dosage: 2.7 MILLIGRAM, QD
     Route: 042
     Dates: start: 20190526, end: 20200320
  7. TEDUGLUTIDE [Suspect]
     Active Substance: TEDUGLUTIDE
     Dosage: 2.7 MILLIGRAM, QD
     Route: 042
     Dates: start: 20190526, end: 20200320
  8. TEDUGLUTIDE [Suspect]
     Active Substance: TEDUGLUTIDE
     Dosage: 2.7 MILLIGRAM, QD
     Route: 042
     Dates: start: 20190526, end: 20200320
  9. TEDUGLUTIDE [Suspect]
     Active Substance: TEDUGLUTIDE
     Dosage: 2.62 MILLIGRAM, QD
     Route: 042
     Dates: start: 20200320, end: 20210405
  10. TEDUGLUTIDE [Suspect]
     Active Substance: TEDUGLUTIDE
     Dosage: 2.62 MILLIGRAM, QD
     Route: 042
     Dates: start: 20200320, end: 20210405
  11. TEDUGLUTIDE [Suspect]
     Active Substance: TEDUGLUTIDE
     Dosage: 2.62 MILLIGRAM, QD
     Route: 042
     Dates: start: 20200320, end: 20210405
  12. TEDUGLUTIDE [Suspect]
     Active Substance: TEDUGLUTIDE
     Dosage: 2.62 MILLIGRAM, QD
     Route: 042
     Dates: start: 20200320, end: 20210405
  13. POTASSIUM [Concomitant]
     Active Substance: POTASSIUM
     Indication: Hypokalaemia
     Dosage: 40 MILLIGRAM, BID
     Route: 048
     Dates: start: 20230131, end: 20230131
  14. POTASSIUM [Concomitant]
     Active Substance: POTASSIUM
     Dosage: 40 MILLIGRAM, BID
     Route: 042
     Dates: start: 20230131, end: 20230131
  15. VITAMIN D [Concomitant]
     Active Substance: VITAMIN D NOS
     Indication: Vitamin D deficiency
     Dosage: 50000 INTERNATIONAL UNIT, 1/WEEK
     Route: 048
     Dates: start: 20230201
  16. VANCOMYCIN [Concomitant]
     Active Substance: VANCOMYCIN
     Indication: Bacteraemia
     Dosage: 500 MILLIGRAM, QD
     Route: 042
     Dates: start: 20230207, end: 20230215
  17. VANCOMYCIN [Concomitant]
     Active Substance: VANCOMYCIN
     Indication: Pneumatosis
     Dosage: 1250 MILLIGRAM, QD
     Route: 042
     Dates: start: 20230707, end: 20230707
  18. VANCOMYCIN [Concomitant]
     Active Substance: VANCOMYCIN
     Dosage: 500 MILLIGRAM, BID
     Route: 042
     Dates: start: 20230713, end: 20230716
  19. CEFEPIME [Concomitant]
     Active Substance: CEFEPIME HYDROCHLORIDE
     Indication: Pneumatosis
     Dosage: 2 GRAM, TID
     Route: 042
     Dates: start: 20230707, end: 20230716
  20. METRONIDAZOLE [Concomitant]
     Active Substance: METRONIDAZOLE
     Indication: Pneumatosis
     Dosage: 500 MILLIGRAM, TID
     Route: 042
     Dates: start: 20230707, end: 20230716

REACTIONS (2)
  - Thrombocytopenia [Not Recovered/Not Resolved]
  - Vitamin D deficiency [Not Recovered/Not Resolved]

NARRATIVE: CASE EVENT DATE: 20230201
